FAERS Safety Report 20362420 (Version 1)
Quarter: 2022Q1

REPORT INFORMATION
  Report Type: Other
  Country: NL (occurrence: None)
  Receive Date: 20220121
  Receipt Date: 20220121
  Transmission Date: 20220423
  Serious: Yes (Death)
  Sender: FDA-Public Use
  Company Number: NL-ROCHE-3003586

PATIENT
  Age: 78 Year
  Sex: Male

DRUGS (7)
  1. TOCILIZUMAB [Suspect]
     Active Substance: TOCILIZUMAB
     Indication: VEXAS syndrome
     Route: 058
     Dates: start: 201912
  2. TOCILIZUMAB [Suspect]
     Active Substance: TOCILIZUMAB
     Indication: VEXAS syndrome
     Route: 042
  3. PREDNISONE [Concomitant]
     Active Substance: PREDNISONE
  4. METHOTREXATE [Concomitant]
     Active Substance: METHOTREXATE
  5. ANAKINRA [Concomitant]
     Active Substance: ANAKINRA
  6. CYCLOSPORINE [Concomitant]
     Active Substance: CYCLOSPORINE
  7. CANAKINUMAB [Concomitant]
     Active Substance: CANAKINUMAB
     Route: 058

REACTIONS (1)
  - Ileal perforation [Fatal]
